FAERS Safety Report 9095743 (Version 1)
Quarter: 2013Q1

REPORT INFORMATION
  Report Type: Spontaneous
  Country: GB (occurrence: None)
  Receive Date: 20130124
  Receipt Date: 20130124
  Transmission Date: 20140127
  Serious: Yes (Other)
  Sender: FDA-Public Use
  Company Number: 2013-00840

PATIENT
  Sex: Male

DRUGS (4)
  1. BISOPROLOL (UNKNOWN) (BISOPROLOL) UNK, UNKUNK [Suspect]
     Indication: HEART RATE IRREGULAR
  2. LOSARTAN POTASSIUM [Suspect]
  3. BENDROFLUMETHIAZIDE (BENDROFLUMETHIAZIDE) [Suspect]
     Dosage: ONLY TAKES 1.25 MG, BUT 2.5 MG RECOMMENDED
  4. ACETYLSALICYLIC ACID (ACETYLSALICYLIC ACID) [Suspect]

REACTIONS (6)
  - Cardiac failure [None]
  - Abdominal distension [None]
  - Aneurysm [None]
  - Blood pressure diastolic increased [None]
  - Transient ischaemic attack [None]
  - Drug interaction [None]
